FAERS Safety Report 6314630-3 (Version None)
Quarter: 2009Q3

REPORT INFORMATION
  Report Type: 
  Country: None (occurrence: None)
  Receive Date: 20090819
  Receipt Date: 20090527
  Transmission Date: 20100115
  Serious: No
  Sender: FDA-Public Use
  Company Number: US-BAYER-200921995NA

PATIENT
  Age: 32 Year
  Sex: Female
  Weight: 68 kg

DRUGS (3)
  1. YAZ [Suspect]
     Indication: CONTRACEPTION
     Route: 048
     Dates: end: 20090430
  2. ASCORBIC ACID [Concomitant]
  3. FOLIC ACID [Concomitant]

REACTIONS (5)
  - ABDOMINAL PAIN LOWER [None]
  - AFFECT LABILITY [None]
  - FEELING ABNORMAL [None]
  - MENSTRUATION DELAYED [None]
  - MOOD SWINGS [None]
